FAERS Safety Report 7375169-X (Version None)
Quarter: 2011Q1

REPORT INFORMATION
  Report Type: 
  Country: None (occurrence: None)
  Receive Date: 20110325
  Receipt Date: 20110315
  Transmission Date: 20110831
  Serious: Yes (Other)
  Sender: FDA-Public Use
  Company Number: FR-SANOFI-AVENTIS-2011SA015999

PATIENT
  Sex: Male

DRUGS (2)
  1. BISOPROLOL [Concomitant]
     Route: 048
  2. MULTAQ [Suspect]
     Indication: ATRIAL FIBRILLATION
     Route: 048

REACTIONS (2)
  - UNDERDOSE [None]
  - ATRIAL FIBRILLATION [None]
